FAERS Safety Report 9963630 (Version 1)
Quarter: 2014Q1

REPORT INFORMATION
  Report Type: Report from Study
  Country: US (occurrence: US)
  Receive Date: 20140305
  Receipt Date: 20140305
  Transmission Date: 20141002
  Serious: No
  Sender: FDA-Public Use
  Company Number: US-ABBVIE-13P-163-1118753-00

PATIENT
  Age: 33 Year
  Sex: Female

DRUGS (1)
  1. HUMIRA [Suspect]
     Indication: CROHN^S DISEASE
     Dates: start: 20130411, end: 20130711

REACTIONS (5)
  - Haemorrhage [Not Recovered/Not Resolved]
  - Increased tendency to bruise [Unknown]
  - Arthralgia [Unknown]
  - Joint swelling [Unknown]
  - Coagulopathy [Unknown]
